FAERS Safety Report 7204234-2 (Version None)
Quarter: 2010Q4

REPORT INFORMATION
  Report Type: 
  Country: None (occurrence: None)
  Receive Date: 20101230
  Receipt Date: 20101227
  Transmission Date: 20110411
  Serious: Yes (Hospitalization, Other)
  Sender: FDA-Public Use
  Company Number: TW-ROCHE-745990

PATIENT
  Sex: Female

DRUGS (5)
  1. PEGASYS [Suspect]
     Indication: HEPATITIS C
     Route: 058
     Dates: start: 20100303, end: 20100621
  2. PEGASYS [Suspect]
     Dosage: DOSE REDUCED
     Route: 058
     Dates: end: 20100728
  3. ROBATROL [Suspect]
     Indication: HEPATITIS C
     Dosage: FREQUENCY: DAILY
     Route: 048
     Dates: start: 20100303, end: 20100728
  4. ROBATROL [Suspect]
     Dosage: DOSE: REDUCED
     Route: 048
     Dates: end: 20100804
  5. PEG-INTRON [Suspect]
     Indication: HEPATITIS C
     Route: 058
     Dates: start: 20100721, end: 20100728

REACTIONS (3)
  - EOSINOPHILIA [None]
  - POLYNEUROPATHY [None]
  - THROMBOCYTOSIS [None]
